FAERS Safety Report 22014339 (Version 1)
Quarter: 2023Q1

REPORT INFORMATION
  Report Type: Spontaneous
  Country: GB (occurrence: GB)
  Receive Date: 20230221
  Receipt Date: 20230221
  Transmission Date: 20230417
  Serious: Yes (Other)
  Sender: FDA-Public Use
  Company Number: GB-ROCHE-3283980

PATIENT
  Sex: Male

DRUGS (18)
  1. CYCLOPHOSPHAMIDE [Suspect]
     Active Substance: CYCLOPHOSPHAMIDE
     Indication: Diffuse large B-cell lymphoma
     Dosage: ONCE IN 123 DAYS
     Route: 065
     Dates: start: 20200301, end: 20200701
  2. BENDAMUSTINE [Suspect]
     Active Substance: BENDAMUSTINE
     Indication: Diffuse large B-cell lymphoma
     Dosage: ONCE IN A DAY
     Route: 065
     Dates: start: 20210701, end: 20210701
  3. CISPLATIN [Suspect]
     Active Substance: CISPLATIN
     Indication: Diffuse large B-cell lymphoma
     Dosage: ONCE IN 32 DAYS
     Route: 065
     Dates: start: 20210501, end: 20210601
  4. CISPLATIN [Suspect]
     Active Substance: CISPLATIN
     Dosage: ONCE IN 60 DAYS
     Route: 065
     Dates: start: 20210101, end: 20210301
  5. CYTARABINE [Suspect]
     Active Substance: CYTARABINE
     Indication: Diffuse large B-cell lymphoma
     Dosage: ONCE IN 32 DAYS
     Route: 065
     Dates: start: 20210501, end: 20210601
  6. DEXAMETHASONE [Suspect]
     Active Substance: DEXAMETHASONE
     Indication: Diffuse large B-cell lymphoma
     Dosage: ONCE IN 32 DAYS
     Route: 065
     Dates: start: 20210501, end: 20210601
  7. DEXAMETHASONE [Suspect]
     Active Substance: DEXAMETHASONE
     Dosage: ONCE IN 60 DAYS
     Route: 065
     Dates: start: 20210101, end: 20210301
  8. GEMCITABINE [Suspect]
     Active Substance: GEMCITABINE
     Indication: Diffuse large B-cell lymphoma
     Dosage: ONCE IN 60 DAYS
     Route: 065
     Dates: start: 20210101, end: 20210301
  9. EPIRUBICIN [Suspect]
     Active Substance: EPIRUBICIN
     Indication: Diffuse large B-cell lymphoma
     Dosage: ONCE IN 123 DAYS
     Route: 065
     Dates: start: 20200301, end: 20200701
  10. LENALIDOMIDE [Suspect]
     Active Substance: LENALIDOMIDE
     Indication: Diffuse large B-cell lymphoma
     Dosage: ONCE IN 32 DAYS
     Route: 065
     Dates: start: 20220501, end: 20220601
  11. ONCOVIN [Suspect]
     Active Substance: VINCRISTINE SULFATE
     Indication: Diffuse large B-cell lymphoma
     Dosage: ONCE IN 123 DAYS
     Route: 065
     Dates: start: 20200301, end: 20200701
  12. POLATUZUMAB VEDOTIN [Suspect]
     Active Substance: POLATUZUMAB VEDOTIN
     Indication: Diffuse large B-cell lymphoma
     Dosage: ONCE IN A DAY
     Route: 065
     Dates: start: 20210701, end: 20210701
  13. PREDNISONE [Suspect]
     Active Substance: PREDNISONE
     Indication: Diffuse large B-cell lymphoma
     Dosage: ONCE IN 123 DAYS
     Route: 065
     Dates: start: 20200301, end: 20200701
  14. RITUXIMAB [Suspect]
     Active Substance: RITUXIMAB
     Indication: Diffuse large B-cell lymphoma
     Dosage: UNK
     Route: 065
     Dates: start: 20200301, end: 20200701
  15. RITUXIMAB [Suspect]
     Active Substance: RITUXIMAB
     Dosage: UNK
     Route: 065
     Dates: start: 20210701, end: 20210701
  16. RITUXIMAB [Suspect]
     Active Substance: RITUXIMAB
     Dosage: UNK
     Route: 065
     Dates: start: 20210501, end: 20210601
  17. RITUXIMAB [Suspect]
     Active Substance: RITUXIMAB
     Dosage: UNK
     Route: 065
     Dates: start: 20210101, end: 20210301
  18. TAFASITAMAB [Suspect]
     Active Substance: TAFASITAMAB
     Indication: Diffuse large B-cell lymphoma
     Dosage: UNK
     Route: 065
     Dates: start: 20220501, end: 20220601

REACTIONS (1)
  - Disease progression [Unknown]
